FAERS Safety Report 14651194 (Version 1)
Quarter: 2018Q1

REPORT INFORMATION
  Report Type: Spontaneous
  Country: CA (occurrence: CA)
  Receive Date: 20180316
  Receipt Date: 20180316
  Transmission Date: 20180509
  Serious: Yes (Disabling)
  Sender: FDA-Public Use
  Company Number: CA-TEVA-2018-CA-868767

PATIENT
  Age: 66 Year
  Sex: Female

DRUGS (5)
  1. CLOPIDOGREL [Suspect]
     Active Substance: CLOPIDOGREL BISULFATE
     Indication: ARTERIOSCLEROSIS
     Route: 048
  2. TECTA (PANTAPRAZOLE) [Concomitant]
     Active Substance: PANTOPRAZOLE MAGNESIUM
  3. COVERSYL (8MG TABLET) [Concomitant]
  4. LIPITOR [Concomitant]
     Active Substance: ATORVASTATIN CALCIUM
  5. ZOPICLONE TABLETS [Concomitant]
     Active Substance: ZOPICLONE

REACTIONS (1)
  - Dyspepsia [Recovered/Resolved]
